FAERS Safety Report 15619481 (Version 1)
Quarter: 2018Q4

REPORT INFORMATION
  Report Type: Spontaneous
  Country: NL (occurrence: NL)
  Receive Date: 20181115
  Receipt Date: 20181115
  Transmission Date: 20190205
  Serious: Yes (Other)
  Sender: FDA-Public Use
  Company Number: NL-ACCORD-092461

PATIENT
  Age: 64 Year
  Sex: Male

DRUGS (8)
  1. CALCIUM CARBONATE. [Concomitant]
     Active Substance: CALCIUM CARBONATE
     Dosage: 1DD1
  2. OMEPRAZOLE. [Concomitant]
     Active Substance: OMEPRAZOLE
     Dosage: 1DD1
  3. MOMETASONE NEUSSPRAY [Concomitant]
     Dosage: 2DD2
  4. SILDENAFIL. [Concomitant]
     Active Substance: SILDENAFIL
     Dosage: ZO NODIG 1
  5. PARACETAMOL [Concomitant]
     Active Substance: ACETAMINOPHEN
     Dosage: 2DD1
  6. DCURA [Concomitant]
     Dosage: 1X PER MAAND 2 AMPULLEN (50.000IE)
  7. COMBODART [Concomitant]
     Active Substance: DUTASTERIDE\TAMSULOSIN
     Dosage: 1DD1
  8. METHOTREXATE. [Suspect]
     Active Substance: METHOTREXATE
     Indication: RHEUMATIC DISORDER
     Dosage: 1X PER WEEK 1 MILILITER (25 MG)
     Dates: start: 20130307, end: 20171030

REACTIONS (3)
  - Increased bronchial secretion [Recovered/Resolved with Sequelae]
  - Pulmonary toxicity [Recovered/Resolved with Sequelae]
  - Dyspnoea [Recovered/Resolved with Sequelae]

NARRATIVE: CASE EVENT DATE: 20170202
